FAERS Safety Report 5163682-5 (Version None)
Quarter: 2006Q4

REPORT INFORMATION
  Report Type: 
  Country: None (occurrence: None)
  Receive Date: 20061204
  Receipt Date: 20010115
  Transmission Date: 20070319
  Serious: Yes (Disabling)
  Sender: FDA-Public Use
  Company Number: FR-GLAXOSMITHKLINE-B0096302A

PATIENT
  Sex: Female
  Weight: 2.2 kg

DRUGS (9)
  1. ZIDOVUDINE [Suspect]
     Indication: ANTIVIRAL PROPHYLAXIS
     Route: 048
     Dates: start: 19990712
  2. LAMIVUDINE [Suspect]
     Indication: ANTIVIRAL PROPHYLAXIS
     Route: 048
  3. STAVUDINE [Suspect]
     Indication: ANTIVIRAL PROPHYLAXIS
     Route: 048
  4. NEVIRAPINE [Suspect]
     Indication: ANTIVIRAL PROPHYLAXIS
     Route: 048
  5. ZIDOVUDINE [Suspect]
     Indication: HIV INFECTION
     Route: 048
     Dates: start: 19990701
  6. STAVUDINE [Suspect]
     Indication: HIV INFECTION
     Route: 048
     Dates: end: 19990601
  7. DIDANOSINE [Suspect]
     Indication: HIV INFECTION
     Route: 048
  8. NELFINAVIR [Suspect]
     Indication: HIV INFECTION
     Route: 048
     Dates: end: 19990601
  9. ZIDOVUDINE [Suspect]
     Route: 042
     Dates: start: 19990712, end: 19990712

REACTIONS (9)
  - CYTOMEGALOVIRUS INFECTION [None]
  - DRUG EXPOSURE DURING PREGNANCY [None]
  - EXTRAPYRAMIDAL DISORDER [None]
  - FOETAL DISTRESS SYNDROME [None]
  - HIV TEST POSITIVE [None]
  - METABOLIC DISORDER [None]
  - NYSTAGMUS [None]
  - OPHTHALMOPLEGIA [None]
  - SMALL FOR DATES BABY [None]
